FAERS Safety Report 21477448 (Version 1)
Quarter: 2022Q4

REPORT INFORMATION
  Report Type: Report from Study
  Country: US (occurrence: US)
  Receive Date: 20221019
  Receipt Date: 20221019
  Transmission Date: 20230113
  Serious: No
  Sender: FDA-Public Use
  Company Number: US-ABBVIE-4160180

PATIENT

DRUGS (1)
  1. CREON [Suspect]
     Active Substance: PANCRELIPASE AMYLASE\PANCRELIPASE LIPASE\PANCRELIPASE PROTEASE
     Indication: Pancreatic failure

REACTIONS (7)
  - Dizziness [Unknown]
  - Flatulence [Unknown]
  - Abdominal discomfort [Unknown]
  - Chills [Unknown]
  - Cough [Unknown]
  - Diarrhoea [Unknown]
  - Flatulence [Unknown]
